FAERS Safety Report 12255405 (Version 6)
Quarter: 2016Q2

REPORT INFORMATION
  Report Type: Report from Study
  Country: US (occurrence: US)
  Receive Date: 20160412
  Receipt Date: 20160603
  Transmission Date: 20160815
  Serious: Yes (Hospitalization, Other)
  Sender: FDA-Public Use
  Company Number: US-GILEAD-2016-0207826

PATIENT
  Age: 46 Year
  Sex: Female
  Weight: 40.82 kg

DRUGS (4)
  1. REMODULIN [Concomitant]
     Active Substance: TREPROSTINIL
  2. REVATIO [Concomitant]
     Active Substance: SILDENAFIL CITRATE
  3. SILDENAFIL. [Concomitant]
     Active Substance: SILDENAFIL
  4. AMBRISENTAN [Suspect]
     Active Substance: AMBRISENTAN
     Indication: PRODUCT USED FOR UNKNOWN INDICATION
     Dosage: 10 MG, QD
     Route: 065

REACTIONS (6)
  - Diarrhoea [Unknown]
  - Feeding tube user [Unknown]
  - Vomiting [Unknown]
  - Syncope [Unknown]
  - Gastric ulcer [Unknown]
  - Fluid imbalance [Unknown]

NARRATIVE: CASE EVENT DATE: 201602
